FAERS Safety Report 19837001 (Version 1)
Quarter: 2021Q3

REPORT INFORMATION
  Report Type: Spontaneous
  Country: US (occurrence: US)
  Receive Date: 20210914
  Receipt Date: 20210914
  Transmission Date: 20211014
  Serious: No
  Sender: FDA-Public Use
  Company Number: US-009507513-2109USA002941

PATIENT
  Sex: Female

DRUGS (2)
  1. LENVATINIB MESYLATE [Suspect]
     Active Substance: LENVATINIB MESYLATE
     Indication: ENDOMETRIAL CANCER
     Dosage: 10 MILLIGRAM, QD
     Dates: start: 20210716
  2. KEYTRUDA [Suspect]
     Active Substance: PEMBROLIZUMAB

REACTIONS (10)
  - Gait disturbance [Unknown]
  - Scratch [Unknown]
  - Wound [Unknown]
  - Weight decreased [Unknown]
  - Vision blurred [Unknown]
  - Gingival pain [Unknown]
  - Pain in extremity [Unknown]
  - Diplopia [Unknown]
  - Paraesthesia oral [Unknown]
  - Vulval ulceration [Recovering/Resolving]
